FAERS Safety Report 5481961-9 (Version None)
Quarter: 2007Q4

REPORT INFORMATION
  Report Type: 
  Country: None (occurrence: None)
  Receive Date: 20071005
  Receipt Date: 20070911
  Transmission Date: 20080405
  Serious: Yes (Hospitalization)
  Sender: FDA-Public Use
  Company Number: 6516 / E2B_00011191

PATIENT
  Age: 74 Year
  Sex: Female

DRUGS (1)
  1. METFORMIN HCL [Suspect]
     Dosage: OCCLUSIVE DRESSING TEC

REACTIONS (1)
  - CONVULSION [None]
